FAERS Safety Report 7709304-8 (Version None)
Quarter: 2011Q3

REPORT INFORMATION
  Report Type: 
  Country: None (occurrence: None)
  Receive Date: 20110825
  Receipt Date: 20110726
  Transmission Date: 20111222
  Serious: No
  Sender: FDA-Public Use
  Company Number: US-TYCO HEALTHCARE/MALLINCKRODT-T201101130

PATIENT
  Sex: Male
  Weight: 96.145 kg

DRUGS (5)
  1. METFORMIN HCL [Concomitant]
     Indication: DIABETES MELLITUS
     Dosage: 100 MG, BID
  2. FENTANYL-100 [Suspect]
     Indication: BACK PAIN
     Dosage: 100 UG/HR, EVERY 72 HOURS
     Route: 062
     Dates: start: 20110301
  3. LISPEROL [Concomitant]
     Indication: BLOOD PRESSURE
     Dosage: 5 MG, UNK
  4. DURAGESIC-100 [Concomitant]
     Dosage: 100 UG/HR Q72 HOURS
     Route: 062
     Dates: start: 20070101, end: 20110301
  5. TRAMADOL HCL [Concomitant]
     Indication: PAIN
     Dosage: 200 MG, QD

REACTIONS (4)
  - DRUG EFFECT DECREASED [None]
  - PARAESTHESIA [None]
  - INITIAL INSOMNIA [None]
  - WITHDRAWAL SYNDROME [None]
